FAERS Safety Report 9884640 (Version 1)
Quarter: 2014Q1

REPORT INFORMATION
  Report Type: Spontaneous
  Country: US (occurrence: None)
  Receive Date: 20140207
  Receipt Date: 20140207
  Transmission Date: 20141002
  Serious: Yes (Death)
  Sender: FDA-Public Use
  Company Number: None

PATIENT
  Age: 77 Year
  Sex: Female
  Weight: 90 kg

DRUGS (1)
  1. XARELTO 20 MG [Suspect]
     Indication: ATRIAL FIBRILLATION
     Dosage: PO DAILY UNKNOWN- CHRONIC MED
     Route: 048

REACTIONS (3)
  - Loss of consciousness [None]
  - Fall [None]
  - Haemorrhage intracranial [None]
